FAERS Safety Report 7869432 (Version 13)
Quarter: 2016Q3

REPORT INFORMATION
  Report Type: Report from Study
  Country: BR (occurrence: BR)
  Receive Date: 20110324
  Receipt Date: 20160920
  Transmission Date: 20161109
  Serious: Yes (Hospitalization, Disabling, Other)
  Sender: FDA-Public Use
  Company Number: BR-ROCHE-766497

PATIENT
  Age: 59 Year
  Sex: Female
  Weight: 58 kg

DRUGS (9)
  1. STILNOX [Concomitant]
     Active Substance: ZOLPIDEM TARTRATE
  2. SYNTHROID [Concomitant]
     Active Substance: LEVOTHYROXINE SODIUM
     Route: 065
  3. ACTEMRA [Suspect]
     Active Substance: TOCILIZUMAB
     Dosage: LAST INFUSION: 28/SEP/2015
     Route: 042
  4. ACTEMRA [Suspect]
     Active Substance: TOCILIZUMAB
     Route: 042
  5. ACTEMRA [Suspect]
     Active Substance: TOCILIZUMAB
     Route: 042
  6. ACTEMRA [Suspect]
     Active Substance: TOCILIZUMAB
     Indication: RHEUMATOID ARTHRITIS
     Route: 042
  7. ACTEMRA [Suspect]
     Active Substance: TOCILIZUMAB
     Route: 042
  8. SYNTHROID [Concomitant]
     Active Substance: LEVOTHYROXINE SODIUM
     Route: 065
  9. METHOTREXATE. [Concomitant]
     Active Substance: METHOTREXATE
     Route: 065

REACTIONS (18)
  - Pain [Recovering/Resolving]
  - Fall [Unknown]
  - Hypoaesthesia [Recovering/Resolving]
  - Rheumatoid factor increased [Unknown]
  - Oral disorder [Recovered/Resolved]
  - Peripheral swelling [Recovering/Resolving]
  - Blood cholesterol increased [Unknown]
  - Cold sweat [Not Recovered/Not Resolved]
  - Peripheral paralysis [Recovered/Resolved]
  - Hypertension [Recovered/Resolved]
  - Sensory loss [Unknown]
  - Rheumatoid arthritis [Not Recovered/Not Resolved]
  - Foot deformity [Not Recovered/Not Resolved]
  - Gait disturbance [Not Recovered/Not Resolved]
  - Neuropathy peripheral [Unknown]
  - Weight increased [Unknown]
  - Mental disorder [Unknown]
  - Weight increased [Recovered/Resolved]

NARRATIVE: CASE EVENT DATE: 20110222
